FAERS Safety Report 15033057 (Version 1)
Quarter: 2018Q3

REPORT INFORMATION
  Report Type: Spontaneous
  Country: US (occurrence: US)
  Receive Date: 20180619
  Receipt Date: 20180619
  Transmission Date: 20181010
  Serious: No
  Sender: FDA-Public Use
  Company Number: US-AVADEL SPECIALTY PHARMACEUTICALS, LLC-2018AVA00069

PATIENT
  Sex: Male

DRUGS (13)
  1. FOLIC ACID. [Concomitant]
     Active Substance: FOLIC ACID
  2. SIMETHICONE (DIMETHICONE) [Concomitant]
     Active Substance: DIMETHICONE
  3. NOCTIVA [Suspect]
     Active Substance: DESMOPRESSIN ACETATE
     Dosage: 0.83 ?G, 1X/DAY 30 MINUTES BEFORE GOING TO BED
     Route: 045
     Dates: start: 20180427, end: 20180524
  4. CASODEX [Concomitant]
     Active Substance: BICALUTAMIDE
  5. MELATONIN [Concomitant]
     Active Substance: MELATONIN
  6. XTANDI [Concomitant]
     Active Substance: ENZALUTAMIDE
  7. VITAMIN E [Concomitant]
     Active Substance: .ALPHA.-TOCOPHEROL
  8. VITAMIN B12 [Concomitant]
     Active Substance: CYANOCOBALAMIN
  9. VITAMIN D3 [Concomitant]
     Active Substance: CHOLECALCIFEROL
  10. XGEVA [Concomitant]
     Active Substance: DENOSUMAB
  11. FINASTERIDE. [Concomitant]
     Active Substance: FINASTERIDE
  12. CELEBREX [Concomitant]
     Active Substance: CELECOXIB
  13. OMEPRAZOLE. [Concomitant]
     Active Substance: OMEPRAZOLE

REACTIONS (3)
  - Fatigue [Recovered/Resolved]
  - Nasal discomfort [Recovered/Resolved]
  - Sinus pain [None]

NARRATIVE: CASE EVENT DATE: 2018
